FAERS Safety Report 23245668 (Version 1)
Quarter: 2023Q4

REPORT INFORMATION
  Report Type: Spontaneous
  Country: IN (occurrence: IN)
  Receive Date: 20231130
  Receipt Date: 20231130
  Transmission Date: 20240109
  Serious: Yes (Death, Other)
  Sender: FDA-Public Use
  Company Number: IN-STRIDES ARCOLAB LIMITED-2023SP017703

PATIENT
  Age: 10 Year
  Sex: Male
  Weight: 25 kg

DRUGS (8)
  1. MYCOPHENOLATE MOFETIL [Suspect]
     Active Substance: MYCOPHENOLATE MOFETIL
     Indication: Takayasu^s arteritis
     Dosage: 900 MILLIGRAM/DAY
     Route: 065
  2. PREDNISOLONE [Suspect]
     Active Substance: PREDNISOLONE
     Indication: Takayasu^s arteritis
     Dosage: 2 MILLIGRAM/KILOGRAM
     Route: 065
  3. HYDRALAZINE HYDROCHLORIDE [Suspect]
     Active Substance: HYDRALAZINE HYDROCHLORIDE
     Indication: Renovascular hypertension
     Dosage: 0.75 MILLIGRAM/KILOGRAM/DAY
     Route: 065
  4. PHENYTOIN [Suspect]
     Active Substance: PHENYTOIN
     Indication: Generalised tonic-clonic seizure
     Dosage: UNK
     Route: 065
  5. NIFEDIPINE [Suspect]
     Active Substance: NIFEDIPINE
     Indication: Renovascular hypertension
     Dosage: 2.4 MILLIGRAM/KILOGRAM/DAY
     Route: 065
  6. CLONIDINE [Suspect]
     Active Substance: CLONIDINE
     Indication: Renovascular hypertension
     Dosage: 17 MICROGRAM/KILOGRAM/DAY
     Route: 065
  7. PRAZOSIN [Suspect]
     Active Substance: PRAZOSIN
     Indication: Renovascular hypertension
     Dosage: 0.2 MILLIGRAM/KILOGRAM/DAY
     Route: 065
  8. LABETALOL [Suspect]
     Active Substance: LABETALOL\LABETALOL HYDROCHLORIDE
     Indication: Renovascular hypertension
     Dosage: 6 MILLIGRAM/KILOGRAM/DAY
     Route: 065

REACTIONS (4)
  - Multiple organ dysfunction syndrome [Fatal]
  - Cardiac failure congestive [Fatal]
  - Therapy non-responder [Unknown]
  - Off label use [Unknown]
